FAERS Safety Report 5712538-5 (Version None)
Quarter: 2008Q2

REPORT INFORMATION
  Report Type: 
  Country: None (occurrence: None)
  Receive Date: 20080418
  Receipt Date: 20080410
  Transmission Date: 20081010
  Serious: Yes (Hospitalization, Other)
  Sender: FDA-Public Use
  Company Number: WAES 0803FIN00004

PATIENT
  Age: 63 Year
  Sex: Female

DRUGS (10)
  1. CAP VORINOSTAT [Suspect]
     Indication: MYCOSIS FUNGOIDES
     Dosage: 400 MG/DAILY; 300 MG/5XW
     Route: 048
     Dates: start: 20080303, end: 20080313
  2. CAP VORINOSTAT [Suspect]
     Indication: MYCOSIS FUNGOIDES
     Dosage: 400 MG/DAILY; 300 MG/5XW
     Route: 048
     Dates: start: 20080317
  3. BISOPROL FUMARATE [Concomitant]
  4. BUDESONIDE (+) FORMOTEROL FUMARATE [Concomitant]
  5. GLUCOSAMINE SULFATE [Concomitant]
  6. HYDROXOCOBALAMIN ACETATE [Concomitant]
  7. LATANOPROST [Concomitant]
  8. LEVOTHYROXINE SODIUM [Concomitant]
  9. TRIMETHOPRIM [Concomitant]
  10. ZOLPIDEM TARTRATE [Concomitant]

REACTIONS (3)
  - CARDIAC DISORDER [None]
  - CONDITION AGGRAVATED [None]
  - DYSPNOEA [None]
